FAERS Safety Report 8226415-1 (Version None)
Quarter: 2012Q1

REPORT INFORMATION
  Report Type: 
  Country: None (occurrence: None)
  Receive Date: 20120321
  Receipt Date: 20120307
  Transmission Date: 20120608
  Serious: Yes (Hospitalization)
  Sender: FDA-Public Use
  Company Number: FR-CELGENEUS-056-21880-12030931

PATIENT
  Sex: Male

DRUGS (14)
  1. DEXAMETHASONE [Suspect]
     Route: 065
     Dates: start: 20111217, end: 20120106
  2. ASPIRIN [Concomitant]
     Route: 065
  3. DEXAMETHASONE [Suspect]
     Route: 065
     Dates: start: 20120207
  4. SINTROM [Concomitant]
     Route: 065
  5. CLONAZEPAM [Concomitant]
     Route: 065
  6. DEXAMETHASONE [Suspect]
     Route: 065
     Dates: start: 20111118, end: 20111208
  7. FENOFIBRATE [Concomitant]
     Route: 065
  8. REVLIMID [Suspect]
     Dosage: 25 MILLIGRAM
     Route: 048
     Dates: start: 20111118, end: 20111208
  9. REVLIMID [Suspect]
     Dosage: 25 MILLIGRAM
     Route: 048
     Dates: start: 20111217, end: 20120106
  10. REVLIMID [Suspect]
     Dosage: 25 MILLIGRAM
     Route: 048
     Dates: start: 20120207
  11. ALDACTONE [Concomitant]
     Route: 065
  12. NICARDIPINE HYDROCHLORIDE [Concomitant]
     Route: 065
  13. ATENOLOL [Concomitant]
     Route: 065
  14. METFORMIN HCL [Concomitant]
     Route: 065

REACTIONS (1)
  - HENOCH-SCHONLEIN PURPURA [None]
